FAERS Safety Report 10429744 (Version 1)
Quarter: 2014Q3

REPORT INFORMATION
  Report Type: Spontaneous
  Country: US (occurrence: US)
  Receive Date: 20140904
  Receipt Date: 20140904
  Transmission Date: 20150326
  Serious: No
  Sender: FDA-Public Use
  Company Number: US-BAYER-2014-132129

PATIENT
  Age: 76 Year
  Sex: Female
  Weight: 49.89 kg

DRUGS (2)
  1. ALEVE [Suspect]
     Active Substance: NAPROXEN SODIUM
     Indication: MUSCULOSKELETAL STIFFNESS
     Dosage: 2 DF, QD
     Route: 048
     Dates: start: 2011
  2. EXCEDRIN [CAFFEINE,PARACETAMOL] [Concomitant]
     Dosage: UNK

REACTIONS (2)
  - Incorrect drug administration duration [None]
  - Off label use [None]

NARRATIVE: CASE EVENT DATE: 2011
